FAERS Safety Report 8971413 (Version 1)
Quarter: 2012Q4

REPORT INFORMATION
  Report Type: 
  Country: GB (occurrence: US)
  Receive Date: 20121218
  Receipt Date: 20121218
  Transmission Date: 20130627
  Serious: Yes (Hospitalization)
  Sender: FDA-Public Use
  Company Number: US-009507513-1212USA004548

PATIENT
  Age: 37 Year
  Sex: Female

DRUGS (9)
  1. TEMODAR [Suspect]
     Indication: GLIOBLASTOMA
     Dosage: 75 mg/kg, qd
     Route: 048
     Dates: start: 20081215
  2. BEVACIZUMAB [Suspect]
     Indication: GLIOBLASTOMA MULTIFORME
     Dosage: 10 mg/kg, 1 in 2 Weeks
     Route: 065
     Dates: start: 20081229
  3. DECADRON [Concomitant]
     Dosage: 10 mg, UNK
     Route: 048
  4. OXYCODONE [Concomitant]
     Dosage: 5 mg, UNK
  5. COLACE [Concomitant]
     Dosage: 100 mg, bid
  6. KEPPRA [Concomitant]
     Dosage: 500 mg, UNK
     Route: 048
  7. PAXIL [Concomitant]
     Dosage: 20 mg, qd
  8. RANITIDINE [Concomitant]
     Dosage: 150 mg, qd
     Route: 048
  9. THERAPEUTIC RADIOPHARMACEUTICAL (UNSPECIFIED) [Concomitant]

REACTIONS (2)
  - Cerebrospinal fluid leakage [Unknown]
  - Osteomyelitis [Unknown]
